FAERS Safety Report 13446882 (Version 2)
Quarter: 2017Q2

REPORT INFORMATION
  Report Type: Spontaneous
  Country: US (occurrence: US)
  Receive Date: 20170417
  Receipt Date: 20170505
  Transmission Date: 20170830
  Serious: No
  Sender: FDA-Public Use
  Company Number: US-PFIZER INC-2017157386

PATIENT
  Age: 86 Year
  Sex: Female

DRUGS (4)
  1. LATANOPROST. [Suspect]
     Active Substance: LATANOPROST
     Dosage: 2 GTT, 2X/DAY (ONE DROP INTO BOTH EYES/TWICE/DAY)
     Route: 047
  2. ZOLAMIDE [Concomitant]
     Active Substance: ACETAZOLAMIDE
     Dosage: UNK
  3. LATANOPROST. [Suspect]
     Active Substance: LATANOPROST
     Indication: MACULAR DEGENERATION
     Dosage: 2 GTT, 1X/DAY (ONE DROP INTO BOTH EYES ONCE/DAY)
     Dates: start: 20140711
  4. TIMOLOL. [Concomitant]
     Active Substance: TIMOLOL
     Dosage: UNK

REACTIONS (7)
  - Body height decreased [Unknown]
  - Product use issue [Unknown]
  - Drug dose omission [Unknown]
  - Incorrect dose administered [Unknown]
  - Intraocular pressure increased [Unknown]
  - Weight increased [Unknown]
  - Product container issue [Unknown]
